FAERS Safety Report 23153340 (Version 1)
Quarter: 2023Q4

REPORT INFORMATION
  Report Type: Spontaneous
  Country: US (occurrence: US)
  Receive Date: 20231107
  Receipt Date: 20231107
  Transmission Date: 20240109
  Serious: No
  Sender: FDA-Public Use
  Company Number: US-BEH-2023165083

PATIENT
  Sex: Male

DRUGS (1)
  1. HUMATE-P [Suspect]
     Active Substance: HUMAN COAGULATION FACTOR VIII/VON WILLEBRAND FACTOR COMPLEX
     Indication: Von Willebrand^s disease
     Dosage: 8560 INTERNATIONAL UNIT, PRN
     Route: 042
     Dates: start: 202304

REACTIONS (2)
  - Pain in extremity [Unknown]
  - Peripheral swelling [Unknown]
